FAERS Safety Report 12804304 (Version 2)
Quarter: 2016Q4

REPORT INFORMATION
  Report Type: Spontaneous
  Country: HN (occurrence: HN)
  Receive Date: 20161003
  Receipt Date: 20161006
  Transmission Date: 20170207
  Serious: Yes (Other)
  Sender: FDA-Public Use
  Company Number: HN-PFIZER INC-2016459797

PATIENT
  Age: 80 Year
  Sex: Male
  Weight: 68.27 kg

DRUGS (7)
  1. LYRICA [Suspect]
     Active Substance: PREGABALIN
     Dosage: 75 MG, 1X/DAY
     Dates: start: 20160927
  2. CELEBRA [Suspect]
     Active Substance: CELECOXIB
     Dosage: 400 MG, 1X/DAY
     Dates: start: 20160927
  3. LYRICA [Suspect]
     Active Substance: PREGABALIN
     Dosage: 75MG EACH DAY AND A HALF
  4. CARDIOASPIRINA [Concomitant]
     Active Substance: ASPIRIN
     Dosage: 0.81 MG, UNK
  5. AMARYL [Concomitant]
     Active Substance: GLIMEPIRIDE
     Indication: DIABETES MELLITUS
     Dosage: 4/1000, 1X/DAY
  6. LIPITOR [Concomitant]
     Active Substance: ATORVASTATIN CALCIUM
     Indication: BLOOD CHOLESTEROL ABNORMAL
     Dosage: 10 MG, 1X/DAY
  7. ATACAND PLUS [Concomitant]
     Active Substance: CANDESARTAN CILEXETIL\HYDROCHLOROTHIAZIDE
     Indication: HYPERTENSION
     Dosage: [CANDESARTAN CILEXETIL 16MG/ HYDROCHLOROTHIAZIDE 12.5MG], UNK

REACTIONS (7)
  - Balance disorder [Unknown]
  - Muscular weakness [Unknown]
  - Limb discomfort [Unknown]
  - Fall [Unknown]
  - Abasia [Unknown]
  - Dizziness [Unknown]
  - Cerebrovascular accident [Unknown]

NARRATIVE: CASE EVENT DATE: 20160928
